FAERS Safety Report 8417023-8 (Version None)
Quarter: 2012Q2

REPORT INFORMATION
  Report Type: 
  Country: None (occurrence: None)
  Receive Date: 20120606
  Receipt Date: 20120525
  Transmission Date: 20120825
  Serious: Yes (Death, Life-Threatening)
  Sender: FDA-Public Use
  Company Number: JP-AMGEN-JPNSP2012034490

PATIENT
  Age: 90 Year
  Sex: Male

DRUGS (2)
  1. ROMIPLATE [Suspect]
     Indication: IDIOPATHIC THROMBOCYTOPENIC PURPURA
     Dosage: 1 MUG/KG, UNK
     Route: 058
     Dates: start: 20111129, end: 20111129
  2. AMBISOME [Concomitant]
     Dosage: UNCERTAINTY
     Route: 065

REACTIONS (1)
  - PNEUMONIA [None]
